FAERS Safety Report 8515315-5 (Version None)
Quarter: 2012Q3

REPORT INFORMATION
  Report Type: 
  Country: None (occurrence: None)
  Receive Date: 20120717
  Receipt Date: 20120711
  Transmission Date: 20120928
  Serious: Yes (Hospitalization, Other)
  Sender: FDA-Public Use
  Company Number: US-PURDUE-USA-2012-0089956

PATIENT
  Age: 38 Year
  Sex: Male

DRUGS (1)
  1. OXYCODONE HCL [Suspect]
     Indication: BACK PAIN

REACTIONS (6)
  - DRUG DEPENDENCE [None]
  - FALL [None]
  - OVERDOSE [None]
  - SUBSTANCE ABUSE [None]
  - HEAD INJURY [None]
  - BACK PAIN [None]
